FAERS Safety Report 24396638 (Version 1)
Quarter: 2024Q4

REPORT INFORMATION
  Report Type: Spontaneous
  Country: FR (occurrence: FR)
  Receive Date: 20241004
  Receipt Date: 20241004
  Transmission Date: 20250115
  Serious: Yes (Other)
  Sender: CELLTRION
  Company Number: FR-CELLTRION INC.-2024FR008398

PATIENT

DRUGS (1)
  1. INFLIXIMAB [Suspect]
     Active Substance: INFLIXIMAB
     Dosage: 1 INJECTION EVERY 2 WEEKS
     Dates: start: 202207

REACTIONS (4)
  - Abdominal pain [Recovered/Resolved]
  - Injection site erythema [Unknown]
  - Device malfunction [Unknown]
  - Device mechanical issue [Unknown]

NARRATIVE: CASE EVENT DATE: 20240331
